FAERS Safety Report 9040382 (Version 1)
Quarter: 2013Q1

REPORT INFORMATION
  Report Type: Report from Study
  Country: US (occurrence: US)
  Receive Date: 20130129
  Receipt Date: 20130129
  Transmission Date: 20140127
  Serious: No
  Sender: FDA-Public Use
  Company Number: US-ABBOTT-12P-163-0893336-00

PATIENT
  Age: 62 Year
  Sex: Male

DRUGS (8)
  1. HUMIRA 40 MG/0.8 ML PEN [Suspect]
     Indication: PSORIASIS
     Dates: start: 20120102
  2. METFORMIN [Concomitant]
     Indication: DIABETES MELLITUS
     Dosage: DAILY
     Route: 048
  3. ULTRAM [Concomitant]
     Indication: NEURALGIA
  4. NEURONTIN [Concomitant]
     Indication: NEURALGIA
  5. VICODIN [Concomitant]
     Indication: NEURALGIA
     Route: 048
  6. MULTIPLE VITAMINS [Concomitant]
     Indication: VITAMIN SUPPLEMENTATION
  7. VITAMIN B3 [Concomitant]
     Indication: VITAMIN SUPPLEMENTATION
     Dosage: DAILY
     Route: 048
  8. TWO UNKNOWN MEDICATIONS [Concomitant]
     Indication: BLOOD CHOLESTEROL INCREASED

REACTIONS (4)
  - Injection site erythema [Recovering/Resolving]
  - Injection site pruritus [Unknown]
  - Injection site pain [Unknown]
  - Dysphagia [Unknown]
